FAERS Safety Report 8534604-1 (Version None)
Quarter: 2012Q3

REPORT INFORMATION
  Report Type: 
  Country: None (occurrence: None)
  Receive Date: 20120724
  Receipt Date: 20120717
  Transmission Date: 20120928
  Serious: Yes (Hospitalization)
  Sender: FDA-Public Use
  Company Number: US-UCBSA-051161

PATIENT
  Age: 56 Year
  Sex: Female
  Weight: 64 kg

DRUGS (5)
  1. KEPPRA [Suspect]
     Dosage: 1000 MG IN AM, 1500 MG IN PM
     Dates: start: 20110101
  2. ZOCOR [Concomitant]
     Dosage: DAILY DOSE: 20 MG
  3. PLAVIX [Concomitant]
  4. VIMPAT [Suspect]
     Dates: start: 20120101, end: 20120101
  5. ARICEPT [Concomitant]
     Indication: CENTRAL NERVOUS SYSTEM LYMPHOMA
     Dosage: DAILY DOSE: 23 MG

REACTIONS (3)
  - PANCREATIC DISORDER [None]
  - LETHARGY [None]
  - NAUSEA [None]
